FAERS Safety Report 4581397-9 (Version None)
Quarter: 2005Q1

REPORT INFORMATION
  Report Type: 
  Country: None (occurrence: None)
  Receive Date: 20050214
  Receipt Date: 20041014
  Transmission Date: 20050727
  Serious: No
  Sender: FDA-Public Use
  Company Number: US-GLAXOSMITHKLINE-A0529950A

PATIENT
  Age: 60 Year
  Sex: Female

DRUGS (8)
  1. LAMICTAL [Suspect]
     Indication: BIPOLAR DISORDER
     Dosage: 25MG PER DAY
     Route: 048
     Dates: start: 20040914
  2. THYROID TAB [Concomitant]
  3. PREMARIN [Concomitant]
  4. LISINOPRIL [Concomitant]
  5. FISH OIL [Concomitant]
  6. MULTIVITAMIN [Concomitant]
  7. CALCIUM GLUCONATE [Concomitant]
  8. AMBIEN [Concomitant]

REACTIONS (1)
  - RASH [None]
